FAERS Safety Report 6602079-5 (Version None)
Quarter: 2010Q1

REPORT INFORMATION
  Report Type: 
  Country: None (occurrence: None)
  Receive Date: 20100225
  Receipt Date: 20100215
  Transmission Date: 20100710
  Serious: Yes (Other)
  Sender: FDA-Public Use
  Company Number: PHEH2009US16366

PATIENT
  Sex: Female

DRUGS (18)
  1. RECLAST [Suspect]
     Indication: OSTEOPOROSIS
     Dosage: UNK
     Dates: start: 20081013
  2. RECLAST [Suspect]
     Dosage: UNK
     Dates: start: 20091013
  3. NEXIUM [Concomitant]
  4. VITAMIN D [Concomitant]
  5. VITAMIN C [Concomitant]
  6. FISH OIL [Concomitant]
  7. ALLEGRA [Concomitant]
  8. MULTI-VITAMINS [Concomitant]
  9. COZAAR [Concomitant]
     Indication: HYPERTENSION
     Dosage: UNK
  10. MAGNESIUM [Concomitant]
  11. ASPIRIN [Concomitant]
  12. AMBIEN [Concomitant]
  13. COMBIPATCH [Concomitant]
  14. CITRUCEL [Concomitant]
  15. TYLENOL PM [Concomitant]
  16. VERAPAMIL [Concomitant]
     Indication: HYPERTENSION
     Dosage: UNK
  17. ZOFRAN [Concomitant]
  18. TUMS [Concomitant]

REACTIONS (6)
  - BEDRIDDEN [None]
  - DEPRESSION [None]
  - HEADACHE [None]
  - NAUSEA [None]
  - PAIN [None]
  - WEIGHT DECREASED [None]
